FAERS Safety Report 10085005 (Version 2)
Quarter: 2014Q2

REPORT INFORMATION
  Report Type: Spontaneous
  Country: AR (occurrence: AR)
  Receive Date: 20140417
  Receipt Date: 20140417
  Transmission Date: 20141212
  Serious: Yes (Death)
  Sender: FDA-Public Use
  Company Number: AR-BAYER-2014-041052

PATIENT
  Age: 62 Year
  Sex: Male

DRUGS (4)
  1. NEXAVAR [Suspect]
     Indication: HEPATOCELLULAR CARCINOMA
     Dosage: 800 MG, BID
     Route: 048
     Dates: start: 20131217
  2. ENALAPRIL [Concomitant]
     Dosage: 10 MG, QD
  3. LANTUS [Concomitant]
     Dosage: 38 IU, QD
  4. LEVOTHYROXINE [Concomitant]
     Dosage: 100 ?G, QD

REACTIONS (7)
  - Gingival bleeding [Not Recovered/Not Resolved]
  - Scrotal swelling [Not Recovered/Not Resolved]
  - Scrotal irritation [Not Recovered/Not Resolved]
  - Pain in extremity [Not Recovered/Not Resolved]
  - Tremor [Not Recovered/Not Resolved]
  - Irritability [Not Recovered/Not Resolved]
  - Hepatocellular carcinoma [Fatal]
